FAERS Safety Report 6995160-2 (Version None)
Quarter: 2010Q3

REPORT INFORMATION
  Report Type: 
  Country: None (occurrence: None)
  Receive Date: 20100915
  Receipt Date: 20100831
  Transmission Date: 20110219
  Serious: Yes (Hospitalization)
  Sender: FDA-Public Use
  Company Number: 2010SP002397

PATIENT
  Sex: Female
  Weight: 68 kg

DRUGS (82)
  1. XOPENEX [Suspect]
     Indication: CHRONIC OBSTRUCTIVE PULMONARY DISEASE
     Dosage: PRN; INHALATION, PRN; INHALATION
     Route: 055
     Dates: start: 20090118, end: 20090927
  2. XOPENEX [Suspect]
     Indication: CHRONIC OBSTRUCTIVE PULMONARY DISEASE
     Dosage: PRN; INHALATION, PRN; INHALATION
     Route: 055
     Dates: start: 20100702
  3. FISH OIL [Concomitant]
  4. COD LIVER [Concomitant]
  5. PREDNISONE [Concomitant]
  6. FUROSEMIDE [Concomitant]
  7. MAXALT [Concomitant]
  8. LIDODERM [Concomitant]
  9. SPIRIVA [Concomitant]
  10. VITAMIN D [Concomitant]
  11. ACIPHEX [Concomitant]
  12. LYRICA [Concomitant]
  13. HYDROCHLOROTHIAZIDE [Concomitant]
  14. FOSAMAX PLUS D [Concomitant]
  15. FIBRE, DIETARY [Concomitant]
  16. MULTIVITAMINS PLUS IRON [Concomitant]
  17. CALCIUM W/MAGNESIUM/ZINC [Concomitant]
  18. LOVASTATIN [Concomitant]
  19. AMITRIPTYLINE HCL [Concomitant]
  20. TRAZODONE HCL [Concomitant]
  21. ACETAMINOPHEN AND HYDROCODONE BITARTRATE [Concomitant]
  22. FLECTOR [Concomitant]
  23. POLYETHYLENE GLYCOL [Concomitant]
  24. TUMS [Concomitant]
  25. POTASSIUM GLUCONATE TAB [Concomitant]
  26. ESTRACE [Concomitant]
  27. NEXIUM [Concomitant]
  28. OXYCODONE HCL AND ACETAMINOPHEN [Concomitant]
  29. POTASSIUM CHLORIDE [Concomitant]
  30. ADVAIR DISKUS 100/50 [Concomitant]
  31. MYCOSTATIN [Concomitant]
  32. SENOKOT [Concomitant]
  33. LEXAPRO [Concomitant]
  34. AVELOX [Concomitant]
  35. DELTASONE [Concomitant]
  36. PULMICORT [Concomitant]
  37. SOLU-MEDROL [Concomitant]
  38. SEPTRA [Concomitant]
  39. MUCINEX DM [Concomitant]
  40. ROBITUSSIN AC [Concomitant]
  41. CHRONULAC [Concomitant]
  42. MOTRIN [Concomitant]
  43. ROCEPHIN [Concomitant]
  44. SODIUM CHLORIDE [Concomitant]
  45. ZOFRAN [Concomitant]
  46. LOVENOX [Concomitant]
  47. PRILOSEC [Concomitant]
  48. ZITHROMAX [Concomitant]
  49. SYMBICORT [Concomitant]
  50. ATROVENT [Concomitant]
  51. PROVENTIL [Concomitant]
  52. PRAVACHOL [Concomitant]
  53. VARENICLINE [Concomitant]
  54. COLACE [Concomitant]
  55. ACETAMINOPHEN [Concomitant]
  56. ROXICODONE [Concomitant]
  57. HUMULIN R [Concomitant]
  58. LEVAQUIN [Concomitant]
  59. VITAMIN A [Concomitant]
  60. SPIRIVA [Concomitant]
  61. COMPAZINE [Concomitant]
  62. PAMELOR [Concomitant]
  63. OXYCONTIN [Concomitant]
  64. OS-CAL + D [Concomitant]
  65. CALTRATE + D [Concomitant]
  66. OCEAN NASAL [Concomitant]
  67. LACTULOSE [Concomitant]
  68. DULCOLAX [Concomitant]
  69. ADVAIR DISKUS 100/50 [Concomitant]
  70. ZITHROMAX [Concomitant]
  71. PROMETHAZINE W/ CODEINE [Concomitant]
  72. DIFLUCAN [Concomitant]
  73. LACTULOSE [Concomitant]
  74. K-DUR [Concomitant]
  75. MUCINEX DM [Concomitant]
  76. COLACE [Concomitant]
  77. PRILOSEC [Concomitant]
  78. SOLU-MEDROL [Concomitant]
  79. ATROVENT [Concomitant]
  80. ALBUTEROL [Concomitant]
  81. K-LYTE [Concomitant]
  82. SODIUM CHLORIDE [Concomitant]

REACTIONS (4)
  - CHRONIC OBSTRUCTIVE PULMONARY DISEASE [None]
  - CONDITION AGGRAVATED [None]
  - HYPONATRAEMIA [None]
  - PNEUMONIA [None]
